FAERS Safety Report 6277196-2 (Version None)
Quarter: 2009Q3

REPORT INFORMATION
  Report Type: 
  Country: None (occurrence: None)
  Receive Date: 20090722
  Receipt Date: 20090209
  Transmission Date: 20100115
  Serious: No
  Sender: FDA-Public Use
  Company Number: US-BRISTOL-MYERS SQUIBB COMPANY-14499073

PATIENT
  Age: 8 Decade
  Sex: Female

DRUGS (1)
  1. COUMADIN [Suspect]
     Dosage: HOLD MEDICATION ON 09FEB09
     Dates: start: 20090107

REACTIONS (5)
  - CYANOSIS [None]
  - ERYTHEMA [None]
  - INTERNATIONAL NORMALISED RATIO INCREASED [None]
  - OEDEMA PERIPHERAL [None]
  - PAIN IN EXTREMITY [None]
